FAERS Safety Report 12454257 (Version 1)
Quarter: 2016Q2

REPORT INFORMATION
  Report Type: Spontaneous
  Country: US (occurrence: US)
  Receive Date: 20160610
  Receipt Date: 20160610
  Transmission Date: 20160815
  Serious: No
  Sender: FDA-Public Use
  Company Number: US-TEVA-655646USA

PATIENT
  Sex: Female
  Weight: 68.1 kg

DRUGS (1)
  1. MIMVEY LO [Suspect]
     Active Substance: ESTRADIOL\NORETHINDRONE ACETATE
     Indication: HORMONE THERAPY
     Dosage: 1 MG/0.5 MG
     Route: 048
     Dates: start: 20160422, end: 20160423

REACTIONS (3)
  - Palpitations [Unknown]
  - Intentional product misuse [Unknown]
  - Panic attack [Unknown]
